FAERS Safety Report 25093849 (Version 2)
Quarter: 2025Q1

REPORT INFORMATION
  Report Type: Spontaneous
  Country: US (occurrence: US)
  Receive Date: 20250319
  Receipt Date: 20250326
  Transmission Date: 20250408
  Serious: Yes (Other)
  Sender: RANBAXY
  Company Number: US-SUN PHARMACEUTICAL INDUSTRIES LTD-2025R1-499424

PATIENT
  Age: 40 Year
  Sex: Male

DRUGS (3)
  1. METHIMAZOLE [Suspect]
     Active Substance: METHIMAZOLE
     Indication: Thyrotoxic crisis
     Route: 065
  2. POTASSIUM IODIDE [Concomitant]
     Active Substance: POTASSIUM IODIDE
     Indication: Thyrotoxic crisis
     Route: 065
  3. iodine solution [Concomitant]
     Indication: Thyrotoxic crisis
     Route: 065

REACTIONS (3)
  - Renal failure [Unknown]
  - Disseminated intravascular coagulation [Unknown]
  - Ischaemic hepatitis [Unknown]
